FAERS Safety Report 8818048 (Version 5)
Quarter: 2013Q1

REPORT INFORMATION
  Report Type: Spontaneous
  Country: US (occurrence: US)
  Receive Date: 20121001
  Receipt Date: 20130104
  Transmission Date: 20140127
  Serious: Yes (Hospitalization, Other)
  Sender: FDA-Public Use
  Company Number: US-009507513-1201USA00877

PATIENT
  Sex: 0

DRUGS (8)
  1. FOSAMAX [Suspect]
     Indication: PAIN
     Dosage: 10 MG, QD
     Route: 048
     Dates: start: 19980202, end: 20010608
  2. FOSAMAX [Suspect]
     Indication: ARTHRITIS
     Dosage: 70 MG, QW
     Route: 048
     Dates: start: 20010608, end: 20100927
  3. ALENDRONATE SODIUM [Suspect]
     Indication: PAIN
     Dosage: 70 MG, QD
     Route: 048
     Dates: start: 200803, end: 20100719
  4. ALENDRONATE SODIUM [Suspect]
     Indication: ARTHRITIS
  5. VITAMIN D (UNSPECIFIED) [Concomitant]
     Dosage: UNK
     Dates: start: 1980
  6. ASCORBIC ACID [Concomitant]
     Dosage: UNK
     Dates: start: 1980
  7. VITAMIN E [Concomitant]
     Dosage: UNK
     Dates: start: 1980
  8. CALCIUM (UNSPECIFIED) [Concomitant]
     Dosage: UNK
     Dates: start: 1980

REACTIONS (47)
  - Femur fracture [Unknown]
  - Intramedullary rod insertion [Unknown]
  - Femur fracture [Unknown]
  - Intramedullary rod insertion [Unknown]
  - Wrist fracture [Unknown]
  - Anaemia postoperative [Recovering/Resolving]
  - Fall [Unknown]
  - Fall [Unknown]
  - Mastectomy [Unknown]
  - Cerebrovascular accident [Unknown]
  - Breast cancer [Unknown]
  - Explorative laparotomy [Unknown]
  - Cholecystectomy [Unknown]
  - Cholecystitis infective [Unknown]
  - Ileus [Unknown]
  - Intestinal obstruction [Unknown]
  - Acute abdomen [Unknown]
  - Intestinal adhesion lysis [Unknown]
  - Tonsillectomy [Unknown]
  - Adenoidectomy [Unknown]
  - Appendicectomy [Unknown]
  - Hyponatraemia [Unknown]
  - Dehydration [Unknown]
  - Pleural effusion [Unknown]
  - Atelectasis [Unknown]
  - Faecaloma [Recovering/Resolving]
  - Diabetes mellitus [Unknown]
  - Calcium deficiency [Unknown]
  - Tooth disorder [Unknown]
  - Steroid therapy [Unknown]
  - Arthropathy [Unknown]
  - Cardiomegaly [Unknown]
  - Bronchitis [Unknown]
  - Conjunctivitis infective [Unknown]
  - Joint effusion [Unknown]
  - Aortic calcification [Unknown]
  - Anxiety [Unknown]
  - Lumbar spinal stenosis [Unknown]
  - Acrochordon excision [Unknown]
  - Acrochordon [Unknown]
  - Muscular weakness [Unknown]
  - Neuropathy peripheral [Unknown]
  - Osteoporosis [Unknown]
  - Osteopenia [Unknown]
  - Acrochordon [Unknown]
  - Muscle spasms [Unknown]
  - Rash [Unknown]
